FAERS Safety Report 16179396 (Version 4)
Quarter: 2020Q1

REPORT INFORMATION
  Report Type: Spontaneous
  Country: US (occurrence: US)
  Receive Date: 20190410
  Receipt Date: 20200331
  Transmission Date: 20200409
  Serious: Yes (Other)
  Sender: FDA-Public Use
  Company Number: US-PFIZER INC-2019148589

PATIENT
  Age: 68 Year
  Sex: Male

DRUGS (1)
  1. DEPO-MEDROL [Suspect]
     Active Substance: METHYLPREDNISOLONE ACETATE
     Indication: VITREOUS PROLAPSE
     Dosage: 0.5 ML, UNK (INJECTED INTO THE ANTERIOR CHAMBER)
     Route: 031

REACTIONS (3)
  - Intentional product use issue [Unknown]
  - Retinal toxicity [Unknown]
  - Necrotising retinitis [Unknown]
